FAERS Safety Report 4785764-X (Version None)
Quarter: 2005Q4

REPORT INFORMATION
  Report Type: 
  Country: None (occurrence: None)
  Receive Date: 20051003
  Receipt Date: 20050811
  Transmission Date: 20060501
  Serious: Yes (Hospitalization, Other)
  Sender: FDA-Public Use
  Company Number: JP-MERCK-0508USA02751

PATIENT
  Age: 80 Year
  Sex: Female

DRUGS (13)
  1. PEPCID [Suspect]
     Indication: GASTRIC ULCER
     Route: 048
     Dates: start: 20050623, end: 20050802
  2. ZOLPIDEM TARTRATE [Suspect]
     Indication: INSOMNIA
     Route: 048
     Dates: start: 20050617, end: 20050804
  3. TEGRETOL [Suspect]
     Indication: EPILEPSY
     Route: 048
     Dates: start: 20050620, end: 20050804
  4. ELAVIL [Suspect]
     Indication: URINE OUTPUT INCREASED
     Route: 048
     Dates: start: 20050801, end: 20050803
  5. VASOTEC [Suspect]
     Indication: HYPERTENSION
     Route: 048
     Dates: start: 20050623, end: 20050806
  6. MAGNESIUM OXIDE [Concomitant]
     Indication: CONSTIPATION
     Route: 048
     Dates: start: 20050617
  7. FUROSEMIDE [Concomitant]
     Indication: CONSTIPATION
     Route: 048
     Dates: start: 20050617
  8. AMLODIPINE BESYLATE [Concomitant]
     Route: 048
     Dates: start: 20050623
  9. CLARITIN [Concomitant]
     Indication: PRURITUS
     Route: 048
     Dates: start: 20050801
  10. TANATRIL [Concomitant]
     Route: 065
     Dates: start: 20050601
  11. NORVASC [Concomitant]
     Route: 065
     Dates: start: 20050601
  12. NIZATIDINE [Concomitant]
     Route: 065
     Dates: start: 20050601
  13. PURSENNID [Concomitant]
     Indication: CONSTIPATION
     Route: 048
     Dates: start: 20050617

REACTIONS (4)
  - AGRANULOCYTOSIS [None]
  - CYSTITIS [None]
  - EPILEPSY [None]
  - NOCTURIA [None]
